FAERS Safety Report 6214727-2 (Version None)
Quarter: 2009Q2

REPORT INFORMATION
  Report Type: 
  Country: None (occurrence: None)
  Receive Date: 20090604
  Receipt Date: 20090526
  Transmission Date: 20091009
  Serious: Yes (Other)
  Sender: FDA-Public Use
  Company Number: A0787754A

PATIENT
  Sex: Male

DRUGS (6)
  1. AVODART [Suspect]
     Dosage: .5MG PER DAY
     Route: 048
     Dates: start: 20090329, end: 20090330
  2. XATRAL [Suspect]
     Dosage: 10MG UNKNOWN
     Route: 048
     Dates: start: 20090320, end: 20090330
  3. ASPIRIN [Concomitant]
     Dosage: 100MGD PER DAY
  4. ENALAPRIL [Concomitant]
     Dosage: 10MGD PER DAY
  5. PRAVASTATIN [Concomitant]
     Dosage: 10MGD PER DAY
  6. AMIODARONE HCL [Concomitant]
     Dosage: 100MGD PER DAY

REACTIONS (1)
  - SYNCOPE [None]
